FAERS Safety Report 4755499-8 (Version None)
Quarter: 2005Q3

REPORT INFORMATION
  Report Type: 
  Country: None (occurrence: None)
  Receive Date: 20050830
  Receipt Date: 20050110
  Transmission Date: 20060218
  Serious: No
  Sender: FDA-Public Use
  Company Number: US-BRISTOL-MYERS SQUIBB COMPANY-12819744

PATIENT
  Age: 22 Year
  Sex: Female

DRUGS (1)
  1. ABILIFY [Suspect]
     Indication: HALLUCINATION
     Dosage: 5 MG 08-NOV-04 TO 18-NOV-04; 10 MG 24-DEC-04 TO 07-JAN-05
     Route: 048
     Dates: start: 20041108, end: 20050107

REACTIONS (2)
  - NORMAL NEWBORN [None]
  - PREGNANCY [None]
